FAERS Safety Report 10223780 (Version 1)
Quarter: 2014Q2

REPORT INFORMATION
  Report Type: Spontaneous
  Country: IT (occurrence: IT)
  Receive Date: 20140609
  Receipt Date: 20140609
  Transmission Date: 20141212
  Serious: Yes (Other)
  Sender: FDA-Public Use
  Company Number: IT-JNJFOC-20140519143

PATIENT
  Age: 60 Year
  Sex: Female
  Weight: 51 kg

DRUGS (2)
  1. CAELYX [Suspect]
     Indication: OVARIAN CANCER RECURRENT
     Route: 042
     Dates: start: 20140516, end: 20140516
  2. CARBOPLATIN [Concomitant]
     Indication: PRODUCT USED FOR UNKNOWN INDICATION
     Route: 042
     Dates: start: 20140516, end: 20140516

REACTIONS (3)
  - Abdominal pain upper [Recovered/Resolved]
  - Laryngospasm [Recovered/Resolved]
  - Nausea [Recovered/Resolved]
